FAERS Safety Report 8113134-5 (Version None)
Quarter: 2012Q1

REPORT INFORMATION
  Report Type: 
  Country: None (occurrence: None)
  Receive Date: 20120203
  Receipt Date: 20120116
  Transmission Date: 20120608
  Serious: Yes (Hospitalization)
  Sender: FDA-Public Use
  Company Number: GB-BAXTER-2011BH032261

PATIENT
  Age: 28 Year
  Sex: Female
  Weight: 95 kg

DRUGS (10)
  1. REMIFENTANYL [Suspect]
     Indication: GENERAL ANAESTHESIA
     Route: 042
  2. ATRACURIUM [Suspect]
     Indication: GENERAL ANAESTHESIA
     Route: 065
  3. SUPRANE [Suspect]
     Indication: GENERAL ANAESTHESIA
     Route: 065
     Dates: start: 20111011
  4. FENTANYL CITRATE [Suspect]
     Indication: GENERAL ANAESTHESIA
     Route: 042
  5. ONDANSETRON [Suspect]
     Indication: GENERAL ANAESTHESIA
     Route: 042
  6. MEPERIDINE HCL [Suspect]
     Indication: GENERAL ANAESTHESIA
     Route: 042
     Dates: start: 20111010, end: 20111010
  7. SCOPOLAMINE [Suspect]
     Indication: PRODUCT USED FOR UNKNOWN INDICATION
     Route: 042
     Dates: start: 20111010, end: 20111010
  8. CYCLIZINE [Suspect]
     Indication: GENERAL ANAESTHESIA
     Route: 042
  9. SUPRANE [Suspect]
     Indication: CHOLEDOCHOLITHOTOMY
     Route: 065
     Dates: start: 20111011
  10. DEXAMETHASONE [Suspect]
     Indication: GENERAL ANAESTHESIA
     Route: 042

REACTIONS (2)
  - PAIN [None]
  - LIVER FUNCTION TEST ABNORMAL [None]
